FAERS Safety Report 11249667 (Version 1)
Quarter: 2015Q3

REPORT INFORMATION
  Report Type: Spontaneous
  Country: US (occurrence: US)
  Receive Date: 20150708
  Receipt Date: 20150708
  Transmission Date: 20151125
  Serious: No
  Sender: FDA-Public Use
  Company Number: US-ELI_LILLY_AND_COMPANY-US200911005301

PATIENT
  Age: 61 Year
  Sex: Male

DRUGS (7)
  1. ZOCOR [Concomitant]
     Active Substance: SIMVASTATIN
     Dosage: 20 D/F, UNK
  2. VITAMINS NOS [Concomitant]
     Active Substance: VITAMINS
  3. GEMZAR [Suspect]
     Active Substance: GEMCITABINE HYDROCHLORIDE
     Indication: BLADDER CANCER
  4. CISPLATIN. [Concomitant]
     Active Substance: CISPLATIN
     Indication: BLADDER CANCER
  5. AMITRIPTYLINE [Concomitant]
     Active Substance: AMITRIPTYLINE
     Indication: DEPRESSION
  6. COZAAR [Concomitant]
     Active Substance: LOSARTAN POTASSIUM
  7. LASIX [Concomitant]
     Active Substance: FUROSEMIDE

REACTIONS (4)
  - Mental status changes [Recovering/Resolving]
  - Depression [Unknown]
  - Memory impairment [Recovering/Resolving]
  - Nausea [Unknown]
